FAERS Safety Report 6573000-3 (Version None)
Quarter: 2010Q1

REPORT INFORMATION
  Report Type: 
  Country: None (occurrence: None)
  Receive Date: 20100208
  Receipt Date: 20100126
  Transmission Date: 20100710
  Serious: Yes (Hospitalization)
  Sender: FDA-Public Use
  Company Number: US-RANBAXY-2010RR-30724

PATIENT

DRUGS (1)
  1. ACYCLOVIR [Suspect]
     Indication: HERPES ZOSTER
     Dosage: 800 MG, UNK
     Route: 048

REACTIONS (14)
  - AGITATION [None]
  - AMNESIA [None]
  - APHASIA [None]
  - ASTERIXIS [None]
  - CEREBROVASCULAR ACCIDENT [None]
  - DRUG TOXICITY [None]
  - DYSARTHRIA [None]
  - ENCEPHALOPATHY [None]
  - HYPERTENSION [None]
  - MYOCLONUS [None]
  - NEUROTOXICITY [None]
  - OVERDOSE [None]
  - PARESIS [None]
  - TREMOR [None]
